FAERS Safety Report 5675236-2 (Version None)
Quarter: 2008Q1

REPORT INFORMATION
  Report Type: 
  Country: None (occurrence: None)
  Receive Date: 20080320
  Receipt Date: 20071109
  Transmission Date: 20080703
  Serious: Yes (Hospitalization)
  Sender: FDA-Public Use
  Company Number: JP-ASTRAZENECA-2007AP07220

PATIENT
  Age: 66 Year
  Sex: Female

DRUGS (10)
  1. CRESTOR [Suspect]
     Indication: HYPERLIPIDAEMIA
     Route: 048
     Dates: start: 20071101, end: 20071108
  2. CRESTOR [Suspect]
     Route: 048
     Dates: start: 20071121, end: 20071213
  3. CRESTOR [Suspect]
     Route: 048
     Dates: start: 20071228
  4. BLOPRESS [Concomitant]
     Indication: HYPERTENSION
     Route: 048
     Dates: start: 20070901
  5. ARTIST [Concomitant]
     Indication: HYPERTENSION
     Route: 048
     Dates: start: 20070901
  6. SIGMART [Concomitant]
     Indication: MYOCARDIAL ISCHAEMIA
     Route: 048
     Dates: start: 20070901
  7. LENDORMIN [Concomitant]
     Indication: INSOMNIA
     Route: 048
     Dates: start: 20070901
  8. NITRODERM [Concomitant]
     Indication: MYOCARDIAL ISCHAEMIA
     Route: 062
     Dates: start: 20070901
  9. TAKEPRON [Concomitant]
     Indication: GASTRIC ULCER HAEMORRHAGE
     Route: 048
     Dates: start: 20071009
  10. FERROMIA [Concomitant]
     Indication: ANAEMIA
     Route: 048
     Dates: start: 20071101

REACTIONS (2)
  - BILE DUCT STONE [None]
  - LIVER DISORDER [None]
